FAERS Safety Report 7724175-1 (Version None)
Quarter: 2011Q3

REPORT INFORMATION
  Report Type: 
  Country: None (occurrence: None)
  Receive Date: 20110829
  Receipt Date: 20110712
  Transmission Date: 20111222
  Serious: No
  Sender: FDA-Public Use
  Company Number: PHHY2011JP67352

PATIENT

DRUGS (1)
  1. TERNELIN (TIZANIDINE HYDROCHLORIDE) TABLET [Suspect]
     Indication: PRODUCT USED FOR UNKNOWN INDICATION
     Dosage: ORAL
     Route: 048
     Dates: start: 20110705

REACTIONS (2)
  - RESPIRATORY DEPRESSION [None]
  - AMYOTROPHIC LATERAL SCLEROSIS [None]
